FAERS Safety Report 16667650 (Version 2)
Quarter: 2020Q1

REPORT INFORMATION
  Report Type: Spontaneous
  Country: US (occurrence: US)
  Receive Date: 20190805
  Receipt Date: 20200331
  Transmission Date: 20200409
  Serious: Yes (Other)
  Sender: FDA-Public Use
  Company Number: US-GILEAD-2019-0421665

PATIENT
  Age: 31 Year
  Sex: Male

DRUGS (47)
  1. ACETAMINOPHEN AND CODEINE [Concomitant]
     Active Substance: ACETAMINOPHEN\CODEINE PHOSPHATE
  2. AMOXCLAV [AMOXICILLIN;CLAVULANIC ACID] [Concomitant]
     Active Substance: AMOXICILLIN\CLAVULANIC ACID
  3. FLUOXETINE [Concomitant]
     Active Substance: FLUOXETINE HYDROCHLORIDE
  4. GABAPENTIN. [Concomitant]
     Active Substance: GABAPENTIN
  5. ISOMETHEPTENE MUCATE, DICHLORALPHENAZONE AND ACETAMINOPHEN [Concomitant]
     Active Substance: ACETAMINOPHEN\DICHLORALPHENAZONE\ISOMETHEPTENE MUCATE
  6. NORTRIPTYLINE [Concomitant]
     Active Substance: NORTRIPTYLINE
  7. PROMETHAZINE [Concomitant]
     Active Substance: PROMETHAZINE HYDROCHLORIDE
  8. TRAMADOL. [Concomitant]
     Active Substance: TRAMADOL
  9. STRIBILD [Suspect]
     Active Substance: COBICISTAT\ELVITEGRAVIR\EMTRICITABINE\TENOFOVIR DISOPROXIL FUMARATE
     Dosage: UNK
     Route: 048
     Dates: start: 20160415, end: 201702
  10. ALENDRONATE [Concomitant]
     Active Substance: ALENDRONATE SODIUM
  11. CLONAZEPAM. [Concomitant]
     Active Substance: CLONAZEPAM
  12. DULOXETINE. [Concomitant]
     Active Substance: DULOXETINE
  13. METHOCARBAMOL. [Concomitant]
     Active Substance: METHOCARBAMOL
  14. STRIBILD [Suspect]
     Active Substance: COBICISTAT\ELVITEGRAVIR\EMTRICITABINE\TENOFOVIR DISOPROXIL FUMARATE
     Dosage: UNK
     Route: 048
     Dates: start: 201307, end: 20150910
  15. DOCUSATE;SENNA [Concomitant]
  16. MELOXICAM. [Concomitant]
     Active Substance: MELOXICAM
  17. MOMETASONE [Concomitant]
     Active Substance: MOMETASONE
  18. PREDNISONE. [Concomitant]
     Active Substance: PREDNISONE
  19. BUPROPION. [Concomitant]
     Active Substance: BUPROPION
  20. AMITRIPTYLINE [Concomitant]
     Active Substance: AMITRIPTYLINE
  21. DICYCLOMINE [Concomitant]
     Active Substance: DICYCLOMINE HYDROCHLORIDE
  22. FLUCONAZOLE. [Concomitant]
     Active Substance: FLUCONAZOLE
  23. ONDANSETRON [Concomitant]
     Active Substance: ONDANSETRON
  24. BENZONATATE. [Concomitant]
     Active Substance: BENZONATATE
  25. STRIBILD [Suspect]
     Active Substance: COBICISTAT\ELVITEGRAVIR\EMTRICITABINE\TENOFOVIR DISOPROXIL FUMARATE
     Indication: HIV INFECTION
     Dosage: UNK
     Route: 048
     Dates: start: 2010
  26. TRUVADA [Suspect]
     Active Substance: EMTRICITABINE\TENOFOVIR DISOPROXIL FUMARATE
     Indication: HIV INFECTION
     Dosage: UNK
     Route: 048
     Dates: start: 201111, end: 201312
  27. CETIRIZINE [Concomitant]
     Active Substance: CETIRIZINE HYDROCHLORIDE
  28. IMIQUIMOD. [Concomitant]
     Active Substance: IMIQUIMOD
  29. NAPROXEN. [Concomitant]
     Active Substance: NAPROXEN
  30. PROCHLORPERAZINE. [Concomitant]
     Active Substance: PROCHLORPERAZINE
  31. METRONIDAZOLE. [Concomitant]
     Active Substance: METRONIDAZOLE
  32. BUSPIRONE [Concomitant]
     Active Substance: BUSPIRONE HYDROCHLORIDE
  33. DOXYCYCLINE. [Concomitant]
     Active Substance: DOXYCYCLINE
  34. FLUTICASONE. [Concomitant]
     Active Substance: FLUTICASONE
  35. GEMFIBROZIL. [Concomitant]
     Active Substance: GEMFIBROZIL
  36. NASONEX [Concomitant]
     Active Substance: MOMETASONE FUROATE
  37. CYCLOBENZAPRINE. [Concomitant]
     Active Substance: CYCLOBENZAPRINE
  38. HYDROCODONE/ACETAMINOPHEN [Concomitant]
     Active Substance: ACETAMINOPHEN\HYDROCODONE
  39. LIDOCAINE. [Concomitant]
     Active Substance: LIDOCAINE
  40. CEPHALEXIN [CEFALEXIN] [Concomitant]
     Active Substance: CEPHALEXIN
  41. GENVOYA [Concomitant]
     Active Substance: COBICISTAT\ELVITEGRAVIR\EMTRICITABINE\TENOFOVIR ALAFENAMIDE FUMARATE
  42. AMLODIPINE [Concomitant]
     Active Substance: AMLODIPINE BESYLATE
  43. AZITHROMYCIN ANHYDROUS. [Concomitant]
     Active Substance: AZITHROMYCIN ANHYDROUS
  44. VALACYCLOVIR [Concomitant]
     Active Substance: VALACYCLOVIR HYDROCHLORIDE
  45. VENLAFAXINE [Concomitant]
     Active Substance: VENLAFAXINE HYDROCHLORIDE
  46. TIZANIDINE. [Concomitant]
     Active Substance: TIZANIDINE
  47. CIPRODEX [CIPROFLOXACIN HYDROCHLORIDE] [Concomitant]
     Active Substance: CIPROFLOXACIN HYDROCHLORIDE

REACTIONS (12)
  - Bone loss [Unknown]
  - Osteoporosis [Unknown]
  - Pain [Unknown]
  - Hand fracture [Not Recovered/Not Resolved]
  - Renal failure [Unknown]
  - Osteopenia [Not Recovered/Not Resolved]
  - Spinal fracture [Not Recovered/Not Resolved]
  - Anhedonia [Unknown]
  - Anxiety [Unknown]
  - Emotional distress [Unknown]
  - Bone density decreased [Unknown]
  - Economic problem [Unknown]

NARRATIVE: CASE EVENT DATE: 20110804
